FAERS Safety Report 23270611 (Version 3)
Quarter: 2024Q2

REPORT INFORMATION
  Report Type: Spontaneous
  Country: CA (occurrence: CA)
  Receive Date: 20231207
  Receipt Date: 20240606
  Transmission Date: 20240715
  Serious: Yes (Other)
  Sender: FDA-Public Use
  Company Number: None

PATIENT
  Age: 9 Year
  Sex: Female

DRUGS (27)
  1. METHOTREXATE [Suspect]
     Active Substance: METHOTREXATE
     Indication: Acute lymphocytic leukaemia
     Dosage: UNK
     Route: 065
     Dates: start: 2021
  2. METHOTREXATE [Suspect]
     Active Substance: METHOTREXATE
     Dosage: UNK
     Route: 037
  3. METHOTREXATE [Suspect]
     Active Substance: METHOTREXATE
     Dosage: UNK (RE-INITIATED)
     Route: 065
  4. DEXAMETHASONE [Suspect]
     Active Substance: DEXAMETHASONE
     Indication: Acute lymphocytic leukaemia
     Dosage: UNK (CHILDREN^S ONCOLOGY GROUP PROTOCOL AALL1731)
     Route: 065
     Dates: start: 2021
  5. DEXAMETHASONE [Suspect]
     Active Substance: DEXAMETHASONE
     Dosage: UNK
     Route: 048
  6. DEXAMETHASONE [Suspect]
     Active Substance: DEXAMETHASONE
     Dosage: UNK (RE-INITIATED)
     Route: 065
  7. DOXORUBICIN [Suspect]
     Active Substance: DOXORUBICIN
     Indication: Acute lymphocytic leukaemia
     Dosage: UNK
     Route: 065
     Dates: start: 2021
  8. DOXORUBICIN [Suspect]
     Active Substance: DOXORUBICIN
     Dosage: UNK
     Route: 042
  9. DOXORUBICIN [Suspect]
     Active Substance: DOXORUBICIN
     Dosage: UNK (RE-INITIATED)
     Route: 065
  10. PREDNISOLONE [Suspect]
     Active Substance: PREDNISOLONE
     Indication: Acute lymphocytic leukaemia
     Dosage: UNK
     Route: 065
     Dates: start: 2021
  11. PREDNISOLONE [Suspect]
     Active Substance: PREDNISOLONE
     Dosage: UNK (PREDNISONE) (CHILDREN^S ONCOLOGY GROUP PROTOCOL AALL1731)
     Route: 065
     Dates: start: 2021
  12. VINCRISTINE SULFATE [Suspect]
     Active Substance: VINCRISTINE SULFATE
     Indication: Acute lymphocytic leukaemia
     Dosage: UNK
     Route: 065
     Dates: start: 2021
  13. VINCRISTINE SULFATE [Suspect]
     Active Substance: VINCRISTINE SULFATE
     Dosage: UNK
     Route: 042
  14. VINCRISTINE SULFATE [Suspect]
     Active Substance: VINCRISTINE SULFATE
     Dosage: UNK (RE-INITIATED)
     Route: 065
  15. BLINATUMOMAB [Suspect]
     Active Substance: BLINATUMOMAB
     Indication: Acute lymphocytic leukaemia
     Dosage: UNK, CYCLICAL (CONTINUOUS INFUSION)
     Route: 042
     Dates: start: 2021
  16. MERCAPTOPURINE [Concomitant]
     Active Substance: MERCAPTOPURINE
     Indication: Acute lymphocytic leukaemia
     Dosage: UNK (CHILDREN^S ONCOLOGY GROUP PROTOCOL AALL1731)
     Route: 048
     Dates: start: 2021
  17. THIOGUANINE [Concomitant]
     Active Substance: THIOGUANINE
     Indication: Acute lymphocytic leukaemia
     Dosage: UNK
     Route: 065
     Dates: start: 2021
  18. ASPARAGINASE [Concomitant]
     Active Substance: ASPARAGINASE
     Indication: Acute lymphocytic leukaemia
     Dosage: UNK (CHILDREN^S ONCOLOGY GROUP PROTOCOL AALL1731 )
     Route: 065
     Dates: start: 2021
  19. CYCLOPHOSPHAMIDE [Concomitant]
     Active Substance: CYCLOPHOSPHAMIDE
     Indication: Acute lymphocytic leukaemia
     Dosage: UNK (CHILDREN^S ONCOLOGY GROUP PROTOCOL AALL1731)
     Route: 065
     Dates: start: 2021
  20. LEUCOVORIN CALCIUM [Concomitant]
     Active Substance: LEUCOVORIN CALCIUM
     Indication: Acute lymphocytic leukaemia
     Dosage: UNK
     Route: 065
     Dates: start: 2021
  21. CYTARABINE [Concomitant]
     Active Substance: CYTARABINE
     Indication: Acute lymphocytic leukaemia
     Dosage: UNK (CHILDREN^S ONCOLOGY GROUP PROTOCOL AALL1731)
     Route: 065
     Dates: start: 2021
  22. PEGASPARGASE [Concomitant]
     Active Substance: PEGASPARGASE
     Indication: Acute lymphocytic leukaemia
     Dosage: UNK
     Route: 065
     Dates: start: 2021
  23. MERCAPTOPURINE [Concomitant]
     Active Substance: MERCAPTOPURINE
     Indication: Acute lymphocytic leukaemia
     Dosage: UNK
     Route: 065
     Dates: start: 2021
  24. METHOTREXATE [Concomitant]
     Active Substance: METHOTREXATE
     Indication: Acute lymphocytic leukaemia
     Dosage: UNK
     Dates: start: 2021
  25. DOXORUBICIN [Concomitant]
     Active Substance: DOXORUBICIN
     Indication: Acute lymphocytic leukaemia
     Dosage: UNK (CHILDREN^S ONCOLOGY GROUP PROTOCOL AALL1731)
     Route: 065
     Dates: start: 2021
  26. BLINATUMOMAB [Concomitant]
     Active Substance: BLINATUMOMAB
     Indication: Acute lymphocytic leukaemia
     Dosage: UNK (CONTINUOUS INFUSION DURING A 28-DAY ADMISSION), (CHILDREN^S ONCOLOGY GROUP PROTOCOL AALL1731 )
     Route: 065
     Dates: start: 2021
  27. VINCRISTINE SULFATE [Concomitant]
     Active Substance: VINCRISTINE SULFATE
     Indication: Acute lymphocytic leukaemia
     Dosage: UNK (CHILDREN^S ONCOLOGY GROUP PROTOCOL AALL1731)
     Route: 065
     Dates: start: 2021

REACTIONS (3)
  - Delirium [Recovered/Resolved]
  - Mucosal inflammation [Recovered/Resolved]
  - Hyperglycaemia [Unknown]

NARRATIVE: CASE EVENT DATE: 20210101
